FAERS Safety Report 4919679-0 (Version None)
Quarter: 2006Q1

REPORT INFORMATION
  Report Type: 
  Country: None (occurrence: None)
  Receive Date: 20060113
  Receipt Date: 20051118
  Transmission Date: 20060701
  Serious: No
  Sender: FDA-Public Use
  Company Number: 2005SP004065

PATIENT
  Age: 63 Year
  Sex: Female
  Weight: 90.7194 kg

DRUGS (6)
  1. LUNESTA [Suspect]
     Indication: INSOMNIA
     Dosage: 3 MG
     Dates: start: 20051014, end: 20051021
  2. ATENOLOL [Concomitant]
  3. VERAPAMIL [Concomitant]
  4. AVANDIA [Concomitant]
  5. SYNTHROID [Concomitant]
  6. ATORVASTATIN CALCIUM [Concomitant]

REACTIONS (1)
  - DYSGEUSIA [None]
